FAERS Safety Report 7272817-X (Version None)
Quarter: 2011Q1

REPORT INFORMATION
  Report Type: 
  Country: None (occurrence: None)
  Receive Date: 20110203
  Receipt Date: 20110201
  Transmission Date: 20110831
  Serious: Yes (Life-Threatening)
  Sender: FDA-Public Use
  Company Number: JP-SANOFI-AVENTIS-2010SA064674

PATIENT
  Age: 73 Year
  Sex: Male
  Weight: 52.4 kg

DRUGS (6)
  1. BASEN [Concomitant]
     Route: 048
  2. NU-LOTAN [Concomitant]
     Route: 048
  3. ACTOS [Concomitant]
     Route: 048
  4. ASPIRIN [Concomitant]
     Route: 048
     Dates: start: 20090906, end: 20100831
  5. STARSIS [Concomitant]
     Route: 048
  6. PLAVIX [Suspect]
     Route: 048
     Dates: start: 20090906, end: 20100831

REACTIONS (1)
  - IN-STENT CORONARY ARTERY RESTENOSIS [None]
